FAERS Safety Report 9988934 (Version 2)
Quarter: 2014Q1

REPORT INFORMATION
  Report Type: Report from Study
  Country: US (occurrence: US)
  Receive Date: 20140310
  Receipt Date: 20140310
  Transmission Date: 20141002
  Serious: No
  Sender: FDA-Public Use
  Company Number: US-ABBVIE-13P-163-1107216-00

PATIENT
  Age: 62 Year
  Sex: Male

DRUGS (12)
  1. HUMIRA [Suspect]
     Indication: PSORIASIS
     Dates: start: 20130614, end: 20130614
  2. HUMIRA [Suspect]
     Dates: start: 20130621
  3. LISINOPRIL [Concomitant]
     Indication: PRODUCT USED FOR UNKNOWN INDICATION
  4. ASPIRIN (E.C.) [Concomitant]
     Indication: CARDIAC DISORDER
  5. VITAMIN D3 [Concomitant]
     Indication: PRODUCT USED FOR UNKNOWN INDICATION
  6. COD LIVER OIL [Concomitant]
     Indication: PRODUCT USED FOR UNKNOWN INDICATION
  7. METFORMIN [Concomitant]
     Dosage: WITH MEALS
  8. SERTRALINE HCL [Concomitant]
     Indication: PRODUCT USED FOR UNKNOWN INDICATION
     Dosage: 1.5 TAB DAILY
  9. METOPROLOL TARTRATE [Concomitant]
     Indication: PRODUCT USED FOR UNKNOWN INDICATION
  10. ALPRAZOLAM [Concomitant]
     Indication: ANXIETY
  11. NITROSTAT [Concomitant]
     Indication: CHEST PAIN
  12. GEMFIBROZIL [Concomitant]
     Indication: GLUCOSE TOLERANCE IMPAIRED

REACTIONS (13)
  - Fatigue [Not Recovered/Not Resolved]
  - Injection site pain [Not Recovered/Not Resolved]
  - Injection site pain [Not Recovered/Not Resolved]
  - Sinusitis [Not Recovered/Not Resolved]
  - Psoriasis [Not Recovered/Not Resolved]
  - Psoriasis [Not Recovered/Not Resolved]
  - Anxiety [Unknown]
  - Nervousness [Not Recovered/Not Resolved]
  - Unevaluable event [Not Recovered/Not Resolved]
  - Unevaluable event [Not Recovered/Not Resolved]
  - Psoriasis [Not Recovered/Not Resolved]
  - Stress [Not Recovered/Not Resolved]
  - Drug ineffective [Not Recovered/Not Resolved]
